FAERS Safety Report 7267621-2 (Version None)
Quarter: 2011Q1

REPORT INFORMATION
  Report Type: 
  Country: None (occurrence: None)
  Receive Date: 20110201
  Receipt Date: 20110124
  Transmission Date: 20110831
  Serious: Yes (Hospitalization)
  Sender: FDA-Public Use
  Company Number: US-AMGEN-USASP2011004253

PATIENT
  Age: 32 Year
  Sex: Female

DRUGS (1)
  1. ENBREL [Suspect]
     Indication: ANKYLOSING SPONDYLITIS
     Dates: start: 20090101, end: 20101121

REACTIONS (5)
  - ANKYLOSING SPONDYLITIS [None]
  - CROHN'S DISEASE [None]
  - PAIN [None]
  - GAIT DISTURBANCE [None]
  - INJECTION SITE PAIN [None]
